FAERS Safety Report 10334584 (Version 2)
Quarter: 2014Q3

REPORT INFORMATION
  Report Type: Spontaneous
  Country: US (occurrence: US)
  Receive Date: 20140723
  Receipt Date: 20140723
  Transmission Date: 20150326
  Serious: No
  Sender: FDA-Public Use
  Company Number: US-UNITED THERAPEUTICS-UTC-045647

PATIENT
  Age: 50 Year
  Sex: Male
  Weight: 95.24 kg

DRUGS (5)
  1. COUMADIN [Concomitant]
     Active Substance: WARFARIN SODIUM
  2. ADCIRCA [Concomitant]
     Active Substance: TADALAFIL
  3. TYVASO [Suspect]
     Active Substance: TREPROSTINIL
     Dosage: 18-54 MICROGRAMS, QID
     Dates: start: 20140220
  4. ADCIRCA [Concomitant]
     Active Substance: TADALAFIL
  5. REVATIO [Concomitant]
     Active Substance: SILDENAFIL CITRATE

REACTIONS (9)
  - Oropharyngeal pain [Unknown]
  - Headache [Not Recovered/Not Resolved]
  - Throat irritation [Unknown]
  - Blood pressure fluctuation [Unknown]
  - Trismus [Unknown]
  - Pain in jaw [Unknown]
  - Cough [Unknown]
  - Sinus congestion [Unknown]
  - Nasal congestion [Unknown]

NARRATIVE: CASE EVENT DATE: 201402
